FAERS Safety Report 7332482-X (Version None)
Quarter: 2011Q1

REPORT INFORMATION
  Report Type: 
  Country: None (occurrence: None)
  Receive Date: 20110222
  Receipt Date: 20110209
  Transmission Date: 20110831
  Serious: Yes (Other)
  Sender: FDA-Public Use
  Company Number: 1000018835

PATIENT
  Age: 30 Year
  Sex: Female
  Weight: 120 kg

DRUGS (5)
  1. CITALOPRAM HYDROBROMIDE [Suspect]
     Indication: ANXIETY
     Dosage: 20 MG (20 MG,1 IN 1 D),ORAL
     Route: 048
     Dates: end: 20101109
  2. CITALOPRAM HYDROBROMIDE [Suspect]
     Indication: DEPRESSION
     Dosage: 20 MG (20 MG,1 IN 1 D),ORAL
     Route: 048
     Dates: end: 20101109
  3. MICROGYN (EUGYNON) (EUGYNON) [Concomitant]
  4. CITALOPRAM HYDROBROMIDE [Suspect]
     Indication: ANXIETY
     Dosage: 10 MG (10 MG,1 IN 1 D),ORAL
     Route: 048
     Dates: start: 20101029
  5. CITALOPRAM HYDROBROMIDE [Suspect]
     Indication: DEPRESSION
     Dosage: 10 MG (10 MG,1 IN 1 D),ORAL
     Route: 048
     Dates: start: 20101029

REACTIONS (8)
  - ARRHYTHMIA [None]
  - NAUSEA [None]
  - DIARRHOEA [None]
  - FEELING ABNORMAL [None]
  - DRY MOUTH [None]
  - TREMOR [None]
  - ANXIETY [None]
  - MICTURITION URGENCY [None]
